FAERS Safety Report 5647403-5 (Version None)
Quarter: 2008Q1

REPORT INFORMATION
  Report Type: 
  Country: None (occurrence: None)
  Receive Date: 20080228
  Receipt Date: 20080216
  Transmission Date: 20080703
  Serious: Yes (Other)
  Sender: FDA-Public Use
  Company Number: CHPA2008US03049

PATIENT
  Age: 65 Year
  Sex: Male

DRUGS (1)
  1. THERAFLU SEVERE COLD (NCH)(PHENIRAMINE MALEATE, PHENYLEPHRINE HYDROCHL [Suspect]
     Indication: PHARYNGOLARYNGEAL PAIN
     Dosage: 1 DF, QID, ORAL
     Route: 048
     Dates: start: 20080213, end: 20080216

REACTIONS (1)
  - BLOOD GLUCOSE INCREASED [None]
